FAERS Safety Report 6177959-8 (Version None)
Quarter: 2009Q2

REPORT INFORMATION
  Report Type: 
  Country: None (occurrence: None)
  Receive Date: 20090430
  Receipt Date: 20090415
  Transmission Date: 20091009
  Serious: Yes (Hospitalization)
  Sender: FDA-Public Use
  Company Number: 2009S1006866

PATIENT
  Age: 20 Year
  Sex: Female

DRUGS (2)
  1. AZATHIOPRINE [Suspect]
     Indication: CROHN'S DISEASE
     Dosage: 100 MG; ORAL
     Route: 048
     Dates: start: 20080626, end: 20080731
  2. PREDNISOLONE [Suspect]
     Indication: CROHN'S DISEASE
     Dosage: 20 MG; ORAL
     Route: 048
     Dates: start: 20080626

REACTIONS (2)
  - DRUG INTERACTION [None]
  - PANCYTOPENIA [None]
